FAERS Safety Report 16231665 (Version 8)
Quarter: 2022Q3

REPORT INFORMATION
  Report Type: Report from Study
  Country: JP (occurrence: JP)
  Receive Date: 20190424
  Receipt Date: 20220713
  Transmission Date: 20221026
  Serious: Yes (Death)
  Sender: FDA-Public Use
  Company Number: JP-ABBVIE-19S-087-2753943-00

PATIENT
  Age: 70 Year
  Sex: Male
  Weight: 47 kg

DRUGS (3)
  1. CARBIDOPA\LEVODOPA [Suspect]
     Active Substance: CARBIDOPA\LEVODOPA
     Indication: Parkinson^s disease
     Dosage: MD: 10 ML, CD: 4.1 ML/HR A 16 HRS, ED: 1 ML/UNIT A 3
     Route: 050
     Dates: start: 20190111, end: 20190421
  2. CARBIDOPA\LEVODOPA [Suspect]
     Active Substance: CARBIDOPA\LEVODOPA
  3. CARBIDOPA HYDRATE-LEVODOPA MIXTURE [Concomitant]
     Indication: Product used for unknown indication
     Route: 048

REACTIONS (6)
  - Dysphagia [Fatal]
  - Asphyxia [Fatal]
  - Pallor [Unknown]
  - Dyspnoea [Recovered/Resolved]
  - Dyspnoea [Recovered/Resolved]
  - Dyspnoea [Not Recovered/Not Resolved]

NARRATIVE: CASE EVENT DATE: 20190206
